FAERS Safety Report 21769127 (Version 1)
Quarter: 2022Q4

REPORT INFORMATION
  Report Type: Spontaneous
  Country: US (occurrence: US)
  Receive Date: 20221222
  Receipt Date: 20221222
  Transmission Date: 20230113
  Serious: No
  Sender: FDA-Public Use
  Company Number: US-BRISTOL-MYERS SQUIBB COMPANY-2022-157652

PATIENT
  Age: 65 Year
  Sex: Female

DRUGS (1)
  1. ONUREG [Suspect]
     Active Substance: AZACITIDINE
     Indication: Product used for unknown indication
     Dosage: FREQ : TAKE 1 BY MOUTH DAYS 1-14 OF 28 DAY CYCLE
     Route: 048

REACTIONS (3)
  - Influenza [Unknown]
  - Illness [Unknown]
  - Hypotension [Unknown]
